FAERS Safety Report 13081707 (Version 1)
Quarter: 2017Q1

REPORT INFORMATION
  Report Type: Report from Study
  Country: KR (occurrence: KR)
  Receive Date: 20170103
  Receipt Date: 20170103
  Transmission Date: 20170428
  Serious: Yes (Other)
  Sender: FDA-Public Use
  Company Number: KR-BRISTOL-MYERS SQUIBB COMPANY-BMS-2016-101909

PATIENT
  Age: 48 Year
  Sex: Male

DRUGS (4)
  1. ASUNAPREVIR [Suspect]
     Active Substance: ASUNAPREVIR
     Indication: HEPATITIS C
     Dosage: 100 MG, BID
     Route: 065
     Dates: start: 20160129, end: 20160717
  2. DACLATASVIR DIHYDROCHLORIDE [Suspect]
     Active Substance: DACLATASVIR DIHYDROCHLORIDE
     Indication: HEPATITIS C
     Dosage: 60 MG, QD
     Route: 065
     Dates: start: 20160129, end: 20160717
  3. TRAJENTA [Concomitant]
     Active Substance: LINAGLIPTIN
     Indication: GLYCOSURIA
     Dosage: 1 TAB, UNK
     Route: 048
     Dates: start: 20160105, end: 20160203
  4. SEVIKAR [Concomitant]
     Active Substance: AMLODIPINE BESYLATE\OLMESARTAN MEDOXOMIL
     Indication: HYPERTENSION
     Dosage: 1 DF, UNK
     Route: 048
     Dates: start: 20160105, end: 20160203

REACTIONS (3)
  - Colon adenoma [Unknown]
  - Large intestinal polypectomy [Recovered/Resolved]
  - Nasopharyngitis [Recovering/Resolving]

NARRATIVE: CASE EVENT DATE: 20160423
